FAERS Safety Report 21783295 (Version 3)
Quarter: 2023Q4

REPORT INFORMATION
  Report Type: Spontaneous
  Country: US (occurrence: US)
  Receive Date: 20221227
  Receipt Date: 20231023
  Transmission Date: 20240110
  Serious: Yes (Death, Hospitalization, Other)
  Sender: FDA-Public Use
  Company Number: US-BAYER-2022A175061

PATIENT
  Age: 76 Year
  Sex: Male

DRUGS (2)
  1. KERENDIA [Suspect]
     Active Substance: FINERENONE
     Dosage: UNK
     Dates: start: 202206
  2. DAPAGLIFLOZIN [Suspect]
     Active Substance: DAPAGLIFLOZIN
     Dosage: UNK
     Dates: start: 202206, end: 2022

REACTIONS (18)
  - Death [Fatal]
  - Liver function test increased [None]
  - Blood creatine increased [None]
  - Plasma cell myeloma [None]
  - Penile gangrene [None]
  - Abdominal discomfort [None]
  - Nervousness [None]
  - Pruritus [Not Recovered/Not Resolved]
  - Anxiety [None]
  - Palpitations [None]
  - Diarrhoea [None]
  - Nausea [None]
  - Fatigue [None]
  - Intra-abdominal fluid collection [None]
  - Blood glucose fluctuation [None]
  - Urine analysis abnormal [None]
  - Ocular icterus [None]
  - Jaundice [None]

NARRATIVE: CASE EVENT DATE: 20220901
